FAERS Safety Report 8621632-0 (Version None)
Quarter: 2012Q3

REPORT INFORMATION
  Report Type: 
  Country: None (occurrence: None)
  Receive Date: 20120820
  Receipt Date: 20120820
  Transmission Date: 20120928
  Serious: Yes (Hospitalization, Other)
  Sender: FDA-Public Use
  Company Number: None

PATIENT
  Age: 56 Year
  Sex: Male
  Weight: 108.8633 kg

DRUGS (4)
  1. AMBIEN CR [Suspect]
     Indication: SLEEP DISORDER
     Dosage: ONE AT NIGHT PO
     Route: 048
     Dates: start: 20120527, end: 20120627
  2. AMBIEN CR [Suspect]
     Indication: PAIN
     Dosage: ONE AT NIGHT PO
     Route: 048
     Dates: start: 20120527, end: 20120627
  3. AMBIEN [Suspect]
     Indication: SLEEP DISORDER
     Dosage: ONE AT NIGH PO
     Route: 048
     Dates: start: 20120810, end: 20120815
  4. AMBIEN [Suspect]
     Indication: PAIN
     Dosage: ONE AT NIGH PO
     Route: 048
     Dates: start: 20120810, end: 20120815

REACTIONS (10)
  - PERIPHERAL COLDNESS [None]
  - DRY MOUTH [None]
  - CHEST PAIN [None]
  - HEART RATE INCREASED [None]
  - BLOOD PRESSURE INCREASED [None]
  - MUSCULAR WEAKNESS [None]
  - ANXIETY [None]
  - HEADACHE [None]
  - VOMITING [None]
  - INCONTINENCE [None]
